FAERS Safety Report 21607933 (Version 1)
Quarter: 2022Q4

REPORT INFORMATION
  Report Type: Spontaneous
  Country: CN (occurrence: CN)
  Receive Date: 20221117
  Receipt Date: 20221117
  Transmission Date: 20230112
  Serious: Yes (Hospitalization)
  Sender: FDA-Public Use
  Company Number: CN-AstraZeneca-2022A366621

PATIENT
  Age: 69 Year
  Sex: Male

DRUGS (8)
  1. METOPROLOL SUCCINATE [Suspect]
     Active Substance: METOPROLOL SUCCINATE
     Indication: Hypertension
     Route: 048
     Dates: start: 20220301, end: 20220309
  2. ASPIRIN [Suspect]
     Active Substance: ASPIRIN
     Indication: Platelet aggregation inhibition
     Route: 048
     Dates: start: 20220301, end: 20220309
  3. TORSEMIDE [Suspect]
     Active Substance: TORSEMIDE
     Indication: Hypertension
     Route: 048
     Dates: start: 20220301, end: 20220309
  4. LERCANIDIPINE HYDROCHLORIDE [Suspect]
     Active Substance: LERCANIDIPINE HYDROCHLORIDE
     Indication: Hypertension
     Route: 048
     Dates: start: 20220301, end: 20220309
  5. CLOPIDOGREL BISULFATE [Suspect]
     Active Substance: CLOPIDOGREL BISULFATE
     Indication: Arteriosclerosis
     Route: 048
     Dates: start: 20220301, end: 20220309
  6. ATORVASTATIN CALCIUM [Suspect]
     Active Substance: ATORVASTATIN CALCIUM
     Indication: Arteriosclerosis
     Route: 048
     Dates: start: 20220301, end: 20220309
  7. RABEPRAZOLE SODIUM [Suspect]
     Active Substance: RABEPRAZOLE SODIUM
     Indication: Gastric ulcer
     Route: 048
     Dates: start: 20220301, end: 20220309
  8. ENALAPRIL MALEATE\FOLIC ACID [Suspect]
     Active Substance: ENALAPRIL MALEATE\FOLIC ACID
     Indication: Hypertension
     Route: 048
     Dates: start: 20220301, end: 20220309

REACTIONS (2)
  - Upper gastrointestinal haemorrhage [Recovering/Resolving]
  - Anaemia [Recovering/Resolving]

NARRATIVE: CASE EVENT DATE: 20220309
